FAERS Safety Report 5292248-1 (Version None)
Quarter: 2007Q2

REPORT INFORMATION
  Report Type: 
  Country: None (occurrence: None)
  Receive Date: 20070410
  Receipt Date: 20070312
  Transmission Date: 20071010
  Serious: Yes (Other)
  Sender: FDA-Public Use
  Company Number: US-SANOFI-SYNTHELABO-A03200702317

PATIENT
  Sex: Female

DRUGS (5)
  1. DIABETES DRUGS [Concomitant]
     Dosage: UNK
     Route: 065
  2. PAXIL [Concomitant]
     Dosage: UNK
     Route: 065
  3. PROZAC [Concomitant]
     Dosage: UNK
     Route: 065
  4. AMBIEN [Suspect]
     Indication: INSOMNIA
     Route: 048
  5. AMBIEN [Suspect]
     Route: 048

REACTIONS (7)
  - AMNESIA [None]
  - DEPRESSION [None]
  - DIABETES MELLITUS [None]
  - EATING DISORDER [None]
  - PRESCRIBED OVERDOSE [None]
  - SLEEP WALKING [None]
  - WEIGHT INCREASED [None]
